FAERS Safety Report 18755284 (Version 1)
Quarter: 2021Q1

REPORT INFORMATION
  Report Type: Spontaneous
  Country: US (occurrence: US)
  Receive Date: 20210114
  Receipt Date: 20210114
  Transmission Date: 20210419
  Serious: No
  Sender: FDA-Public Use
  Company Number: None

PATIENT
  Age: 62 Year
  Sex: Male

DRUGS (1)
  1. AMBRISENTAN 5MG TABLETS 30/BO: 5MG [Suspect]
     Active Substance: AMBRISENTAN
     Indication: PULMONARY ARTERIAL HYPERTENSION
     Route: 048
     Dates: start: 20201221

REACTIONS (5)
  - Polyuria [None]
  - Oedema peripheral [None]
  - Myalgia [None]
  - Dyspnoea exertional [None]
  - Fluid retention [None]

NARRATIVE: CASE EVENT DATE: 20210111
